FAERS Safety Report 6074474-7 (Version None)
Quarter: 2009Q1

REPORT INFORMATION
  Report Type: 
  Country: None (occurrence: None)
  Receive Date: 20090211
  Receipt Date: 20090203
  Transmission Date: 20090719
  Serious: Yes (Hospitalization)
  Sender: FDA-Public Use
  Company Number: US-AMGEN-US328431

PATIENT
  Sex: Male
  Weight: 127.1 kg

DRUGS (7)
  1. PANITUMUMAB [Suspect]
     Indication: SQUAMOUS CELL CARCINOMA
     Route: 042
     Dates: start: 20081202
  2. WELLBUTRIN [Concomitant]
     Route: 048
  3. LISINOPRIL [Concomitant]
     Route: 048
  4. FLECAINIDE ACETATE [Concomitant]
     Route: 048
  5. LIPITOR [Concomitant]
     Route: 048
  6. FLOMAX [Concomitant]
     Route: 048
  7. RADIATION THERAPY [Concomitant]
     Dates: start: 20081202

REACTIONS (5)
  - DEHYDRATION [None]
  - HYPOGLYCAEMIA [None]
  - MUCOSAL INFLAMMATION [None]
  - RENAL FAILURE ACUTE [None]
  - WEIGHT DECREASED [None]
